FAERS Safety Report 5682829-5 (Version None)
Quarter: 2008Q1

REPORT INFORMATION
  Report Type: 
  Country: None (occurrence: None)
  Receive Date: 20080327
  Receipt Date: 20080326
  Transmission Date: 20080703
  Serious: Yes (Life-Threatening, Hospitalization, Other)
  Sender: FDA-Public Use
  Company Number: A0717097A

PATIENT
  Age: 48 Year
  Sex: Female

DRUGS (1)
  1. HYCAMTIN [Suspect]
     Route: 042
     Dates: start: 20071203, end: 20080201

REACTIONS (9)
  - AMAUROSIS [None]
  - AMAUROSIS FUGAX [None]
  - BRAIN OEDEMA [None]
  - CONVULSION [None]
  - ELECTROENCEPHALOGRAM ABNORMAL [None]
  - HEADACHE [None]
  - HYPERTENSION [None]
  - PANCYTOPENIA [None]
  - REVERSIBLE POSTERIOR LEUKOENCEPHALOPATHY SYNDROME [None]
